FAERS Safety Report 5441660-6 (Version None)
Quarter: 2007Q3

REPORT INFORMATION
  Report Type: 
  Country: None (occurrence: None)
  Receive Date: 20070904
  Receipt Date: 20070821
  Transmission Date: 20080115
  Serious: Yes (Other)
  Sender: FDA-Public Use
  Company Number: FR-SANOFI-SYNTHELABO-A02200702121

PATIENT
  Age: 53 Year
  Sex: Male

DRUGS (12)
  1. COUMADIN [Concomitant]
     Indication: DRUG USE FOR UNKNOWN INDICATION
     Dosage: UNK
     Route: 048
     Dates: start: 20031001
  2. PLAVIX [Concomitant]
     Indication: DRUG USE FOR UNKNOWN INDICATION
     Route: 048
     Dates: start: 20060401
  3. PLAQUENIL [Suspect]
     Indication: DRUG USE FOR UNKNOWN INDICATION
     Route: 048
     Dates: start: 20031001, end: 20070101
  4. PLAQUENIL [Suspect]
     Route: 048
     Dates: start: 20070101
  5. GENAC [Concomitant]
     Dosage: UNK
     Route: 065
  6. BRICANYL [Concomitant]
     Dosage: UNK
     Route: 065
  7. PULMICORT [Concomitant]
     Dosage: UNK
     Route: 065
  8. PHOSPHALUGEL [Concomitant]
     Dosage: UNK
     Route: 065
  9. POTASSIUM CHLORIDE [Concomitant]
     Dosage: UNK
     Route: 065
  10. OROCAL [Concomitant]
     Dosage: UNK
     Route: 065
  11. SPECIAFOLDINE [Concomitant]
     Dosage: UNK
     Route: 065
  12. HYDROCORTISONE [Concomitant]
     Dosage: UNK
     Route: 065

REACTIONS (1)
  - INTERNATIONAL NORMALISED RATIO [None]
